FAERS Safety Report 21169728 (Version 1)
Quarter: 2022Q3

REPORT INFORMATION
  Report Type: Spontaneous
  Country: US (occurrence: US)
  Receive Date: 20220804
  Receipt Date: 20220804
  Transmission Date: 20221026
  Serious: Yes (Other)
  Sender: FDA-Public Use
  Company Number: US-BRISTOL-MYERS SQUIBB COMPANY-2022-080701

PATIENT
  Age: 83 Year
  Sex: Male
  Weight: 90.72 kg

DRUGS (22)
  1. REVLIMID [Suspect]
     Active Substance: LENALIDOMIDE
     Indication: Plasma cell myeloma
     Dosage: QD X 14 DAYS FOR MYELOMA
     Route: 048
  2. REVLIMID [Suspect]
     Active Substance: LENALIDOMIDE
     Route: 048
     Dates: start: 20220613, end: 20220629
  3. REVLIMID [Suspect]
     Active Substance: LENALIDOMIDE
     Route: 048
     Dates: start: 20220629, end: 20220722
  4. ACYCLOVIR [Concomitant]
     Active Substance: ACYCLOVIR
     Indication: Product used for unknown indication
     Route: 048
     Dates: start: 20201117
  5. ALLOPURINOL [Concomitant]
     Active Substance: ALLOPURINOL
     Indication: Product used for unknown indication
     Route: 048
     Dates: start: 20201117
  6. ASPIRIN TEVA [Concomitant]
     Indication: Product used for unknown indication
     Route: 048
     Dates: start: 20201117
  7. CALCITRIOL [Concomitant]
     Active Substance: CALCITRIOL
     Indication: Product used for unknown indication
     Dosage: 0.25 MCG
     Route: 048
     Dates: start: 20201117
  8. GLYMESASON [DEXAMETHASONE] [Concomitant]
     Indication: Product used for unknown indication
     Route: 048
     Dates: start: 20201117
  9. FERROUS SULFATE [Concomitant]
     Active Substance: FERROUS SULFATE
     Indication: Product used for unknown indication
     Dosage: 325 (65 FE)
     Route: 048
     Dates: start: 20201117
  10. FUROSEMIDE [Concomitant]
     Active Substance: FUROSEMIDE
     Indication: Product used for unknown indication
     Route: 048
     Dates: start: 20201117
  11. VALKET [LORATADINE] [Concomitant]
     Indication: Product used for unknown indication
     Route: 048
     Dates: start: 20201117
  12. PREZAR [LOSARTAN] [Concomitant]
     Indication: Product used for unknown indication
     Route: 048
     Dates: start: 20201117
  13. METOPROLOL EG [METOPROLOL SUCCINATE] [Concomitant]
     Indication: Product used for unknown indication
     Route: 048
     Dates: start: 20201117
  14. PIOGLITAZONE HYDROCHLORIDE [Concomitant]
     Active Substance: PIOGLITAZONE HYDROCHLORIDE
     Indication: Product used for unknown indication
     Route: 048
     Dates: start: 20201117
  15. GLUCOSE, SODIUM CHLORIDE AND POTASSIUM CHLORIDE [Concomitant]
     Indication: Product used for unknown indication
     Dosage: 20 MEQ
     Route: 048
     Dates: start: 20201117
  16. ROSUVASTATIN [Concomitant]
     Active Substance: ROSUVASTATIN
     Indication: Product used for unknown indication
     Route: 048
     Dates: start: 20201117
  17. PRIMAX [SILDENAFIL] [Concomitant]
     Indication: Product used for unknown indication
     Route: 048
     Dates: start: 20201117
  18. TAMSULOSIN [Concomitant]
     Active Substance: TAMSULOSIN
     Indication: Product used for unknown indication
     Route: 048
     Dates: start: 20201117
  19. VICTOZA [Concomitant]
     Active Substance: LIRAGLUTIDE
     Indication: Product used for unknown indication
     Dosage: 18MG/3ML
     Route: 058
     Dates: start: 20201117
  20. VITAMIN D2 [Concomitant]
     Active Substance: ERGOCALCIFEROL
     Indication: Product used for unknown indication
     Dosage: 50MCG
     Route: 048
     Dates: start: 20201117
  21. ZOFRAN [Concomitant]
     Active Substance: ONDANSETRON HYDROCHLORIDE
     Indication: Product used for unknown indication
     Route: 048
     Dates: start: 20201117
  22. ASPIRIN TEVA [Concomitant]
     Indication: Product used for unknown indication
     Dosage: DAILY
     Route: 048
     Dates: start: 20210212

REACTIONS (2)
  - Malignant neoplasm progression [Unknown]
  - Off label use [Unknown]
